FAERS Safety Report 20854612 (Version 1)
Quarter: 2022Q2

REPORT INFORMATION
  Report Type: Spontaneous
  Country: US (occurrence: US)
  Receive Date: 20220520
  Receipt Date: 20220520
  Transmission Date: 20220720
  Serious: Yes (Hospitalization, Other)
  Sender: FDA-Public Use
  Company Number: US-WOCKHARDT BIO AG-2022WBA000046

PATIENT
  Age: 77 Year
  Sex: Male

DRUGS (4)
  1. LACTULOSE [Suspect]
     Active Substance: LACTULOSE
     Indication: Hepatic encephalopathy
     Route: 054
  2. CEFOTAXIME [Concomitant]
     Active Substance: CEFOTAXIME SODIUM
     Indication: Spontaneous bacterial peritonitis
     Dosage: 2 GRAM EVERY EIGHT HOURS
     Route: 065
  3. FUROSEMIDE [Concomitant]
     Active Substance: FUROSEMIDE
     Indication: Product used for unknown indication
     Dosage: 40 MILLIGRAM, QD
     Route: 065
  4. SPIRONOLACTONE [Concomitant]
     Active Substance: SPIRONOLACTONE
     Indication: Product used for unknown indication
     Dosage: 50 MILLIGRAM, QD
     Route: 065

REACTIONS (2)
  - Colitis ischaemic [Not Recovered/Not Resolved]
  - Pneumatosis intestinalis [Not Recovered/Not Resolved]
